FAERS Safety Report 11317729 (Version 1)
Quarter: 2015Q3

REPORT INFORMATION
  Report Type: Report from Study
  Country: US (occurrence: US)
  Receive Date: 20150728
  Receipt Date: 20150728
  Transmission Date: 20151125
  Serious: Yes (Other)
  Sender: FDA-Public Use
  Company Number: US-ABBVIE-13P-163-1064762-00

PATIENT
  Sex: Female

DRUGS (1)
  1. HUMIRA [Suspect]
     Active Substance: ADALIMUMAB
     Indication: PRODUCT USED FOR UNKNOWN INDICATION
     Route: 058
     Dates: start: 200809

REACTIONS (5)
  - Rectal haemorrhage [Unknown]
  - Vaginal haemorrhage [Unknown]
  - Female genital tract fistula [Unknown]
  - Hot flush [Unknown]
  - Haemorrhoids [Unknown]
